FAERS Safety Report 5445487-0 (Version None)
Quarter: 2007Q3

REPORT INFORMATION
  Report Type: 
  Country: None (occurrence: None)
  Receive Date: 20070906
  Receipt Date: 20070821
  Transmission Date: 20080115
  Serious: No
  Sender: FDA-Public Use
  Company Number: US-BOEHRINGER INGELHEIM PHARMACEUTICALS, INC.-2007-BP-18955BP

PATIENT
  Sex: Male

DRUGS (6)
  1. FLOMAX [Suspect]
     Indication: BENIGN PROSTATIC HYPERPLASIA
     Route: 048
     Dates: start: 20070808
  2. FLOMAX [Suspect]
     Indication: MICTURITION URGENCY
  3. IMDUR [Concomitant]
     Indication: ANGINA PECTORIS
  4. ATENOLOL [Concomitant]
     Indication: HYPERTENSION
  5. PROTONIX [Concomitant]
  6. HYZAAR [Concomitant]
     Indication: BLOOD PRESSURE INCREASED

REACTIONS (1)
  - EPISTAXIS [None]
